FAERS Safety Report 4956579-4 (Version None)
Quarter: 2006Q1

REPORT INFORMATION
  Report Type: 
  Country: None (occurrence: None)
  Receive Date: 20060329
  Receipt Date: 20041108
  Transmission Date: 20060701
  Serious: Yes (Hospitalization, Disabling)
  Sender: FDA-Public Use
  Company Number: US-MERCK-0411USA01462

PATIENT
  Age: 42 Year
  Sex: Male
  Weight: 102 kg

DRUGS (30)
  1. VIOXX [Suspect]
     Indication: ARTHRITIS
     Route: 048
     Dates: start: 20001212, end: 20040729
  2. VIOXX [Suspect]
     Route: 048
     Dates: start: 20001222, end: 20040729
  3. VIOXX [Suspect]
     Route: 048
     Dates: start: 20001222, end: 20040729
  4. VIOXX [Suspect]
     Indication: OSTEOARTHRITIS
     Route: 048
     Dates: start: 20001212, end: 20040729
  5. VIOXX [Suspect]
     Route: 048
     Dates: start: 20001222, end: 20040729
  6. VIOXX [Suspect]
     Route: 048
     Dates: start: 20001222, end: 20040729
  7. LORTAB [Concomitant]
     Route: 065
  8. XANAX [Concomitant]
     Route: 065
  9. NEXIUM [Concomitant]
     Route: 065
  10. DURAGESIC-100 [Concomitant]
     Route: 065
  11. OXYCONTIN [Concomitant]
     Route: 065
  12. STADOL [Concomitant]
     Route: 065
  13. PERCOCET [Concomitant]
     Route: 065
  14. FOLIC ACID [Concomitant]
     Route: 065
  15. CLONAZEPAM [Concomitant]
     Route: 065
  16. HYDROCODONE BITARTRATE [Concomitant]
     Route: 065
  17. PROPRANOLOL HYDROCHLORIDE [Concomitant]
     Route: 065
  18. INDERAL [Concomitant]
     Route: 065
  19. ZOLOFT [Concomitant]
     Route: 065
  20. CALCIUM (UNSPECIFIED) [Concomitant]
     Route: 065
  21. KLONOPIN [Concomitant]
     Route: 065
  22. VITAMINS (UNSPECIFIED) [Concomitant]
     Route: 065
  23. PRAVACHOL [Concomitant]
     Route: 065
  24. NITROGLYCERIN [Concomitant]
     Route: 065
  25. OXYIR [Concomitant]
     Route: 065
  26. NIFEREX [Concomitant]
     Route: 065
  27. ASPIRIN [Concomitant]
     Route: 065
  28. METHADONE HCL [Concomitant]
     Route: 065
  29. LIPITOR [Concomitant]
     Route: 065
  30. PREVACID [Concomitant]
     Route: 065

REACTIONS (12)
  - ANXIETY [None]
  - BLOOD CHOLESTEROL INCREASED [None]
  - CORONARY ARTERY DISEASE [None]
  - DIFFICULTY IN WALKING [None]
  - DYSPEPSIA [None]
  - GASTROOESOPHAGEAL REFLUX DISEASE [None]
  - HYPERTENSION [None]
  - MYOCARDIAL INFARCTION [None]
  - OVERDOSE [None]
  - PAIN [None]
  - POLYP [None]
  - PROSTATE INFECTION [None]
